FAERS Safety Report 24927332 (Version 1)
Quarter: 2025Q1

REPORT INFORMATION
  Report Type: Spontaneous
  Country: US (occurrence: US)
  Receive Date: 20250205
  Receipt Date: 20250205
  Transmission Date: 20250409
  Serious: Yes (Other)
  Sender: JOHNSON AND JOHNSON
  Company Number: US-JNJFOC-20250111479

PATIENT
  Age: 77 Year
  Sex: Female
  Weight: 81.2 kg

DRUGS (25)
  1. OPSUMIT [Suspect]
     Active Substance: MACITENTAN
     Indication: Product used for unknown indication
     Route: 048
  2. TYVASO DPI [Suspect]
     Active Substance: TREPROSTINIL
     Indication: Pulmonary arterial hypertension
     Route: 055
     Dates: start: 20230223
  3. MORNIFLUMATE [Concomitant]
     Active Substance: MORNIFLUMATE
  4. LIPITOR [Concomitant]
     Active Substance: ATORVASTATIN CALCIUM
  5. ALBUTEROL\IPRATROPIUM [Concomitant]
     Active Substance: ALBUTEROL\IPRATROPIUM
  6. ELIQUIS [Concomitant]
     Active Substance: APIXABAN
  7. ACETAMINOPHEN\HYDROCODONE [Concomitant]
     Active Substance: ACETAMINOPHEN\HYDROCODONE
  8. PULMICORT TURBUHALER [Concomitant]
     Active Substance: BUDESONIDE
  9. BUMETANIDE [Concomitant]
     Active Substance: BUMETANIDE
  10. BENZTROPINE MESYLATE [Concomitant]
     Active Substance: BENZTROPINE MESYLATE
  11. ALBUTEROL SULFATE [Concomitant]
     Active Substance: ALBUTEROL SULFATE
  12. DAILY VITE [ASCORBIC ACID;CALCIUM PANTOTHENATE;COLECALCIFEROL;CYANOCOB [Concomitant]
  13. CALCIUM +D [CALCIUM CARBONATE;COLECALCIFEROL] [Concomitant]
  14. LAMICTAL [Concomitant]
     Active Substance: LAMOTRIGINE
  15. LEVOTHYROXINE SODIUM [Concomitant]
     Active Substance: LEVOTHYROXINE SODIUM
  16. KLOR-CON M20 [Concomitant]
     Active Substance: POTASSIUM CHLORIDE
  17. METOLAZONE [Concomitant]
     Active Substance: METOLAZONE
  18. LITHIUM CARBONATE [Concomitant]
     Active Substance: LITHIUM CARBONATE
  19. BACITRACIN [Concomitant]
     Active Substance: BACITRACIN
  20. OXYGEN [Concomitant]
     Active Substance: OXYGEN
  21. SPIRONOLACTONE [Concomitant]
     Active Substance: SPIRONOLACTONE
  22. CELECOXIB [Concomitant]
     Active Substance: CELECOXIB
  23. OLANZAPINE [Concomitant]
     Active Substance: OLANZAPINE
  24. GABAPENTIN [Concomitant]
     Active Substance: GABAPENTIN
  25. REMERON [Concomitant]
     Active Substance: MIRTAZAPINE

REACTIONS (1)
  - Condition aggravated [Unknown]
